FAERS Safety Report 6599647-6 (Version None)
Quarter: 2010Q1

REPORT INFORMATION
  Report Type: 
  Country: None (occurrence: None)
  Receive Date: 20100224
  Receipt Date: 20091221
  Transmission Date: 20100710
  Serious: Yes (Death)
  Sender: FDA-Public Use
  Company Number: US-ROCHE-686661

PATIENT
  Sex: Female
  Weight: 100.7 kg

DRUGS (8)
  1. BEVACIZUMAB [Suspect]
     Route: 042
     Dates: start: 20091007
  2. BLINDED EVEROLIMUS [Suspect]
     Route: 065
     Dates: start: 20091007
  3. PACLITAXEL [Suspect]
     Route: 042
     Dates: start: 20091007
  4. OXYCODONE HCL [Concomitant]
  5. TRAMADOL HCL [Concomitant]
  6. GLIMEPIRIDE [Concomitant]
  7. EMLA [Concomitant]
  8. PROCHLORPERAZINE MALEATE [Concomitant]

REACTIONS (3)
  - DEHYDRATION [None]
  - DIARRHOEA [None]
  - INFLUENZA LIKE ILLNESS [None]
